FAERS Safety Report 9197741 (Version 1)
Quarter: 2013Q1

REPORT INFORMATION
  Report Type: Spontaneous
  Country: US (occurrence: None)
  Receive Date: 20120709
  Receipt Date: 20120709
  Transmission Date: 20140127
  Serious: Yes (Other)
  Sender: FDA-Public Use
  Company Number: PHEH2011US06342

PATIENT
  Sex: Male
  Weight: 84.5 kg

DRUGS (1)
  1. GLEEVEC [Suspect]
     Indication: GASTROINTESTINAL STROMAL TUMOUR
     Route: 048
     Dates: end: 2008

REACTIONS (7)
  - Gastrointestinal stromal tumour [None]
  - Neoplasm malignant [None]
  - Oedema peripheral [None]
  - Eyelid oedema [None]
  - Nausea [None]
  - Vomiting [None]
  - Periorbital oedema [None]
